FAERS Safety Report 18018266 (Version 1)
Quarter: 2020Q3

REPORT INFORMATION
  Report Type: Other
  Country: ES (occurrence: ES)
  Receive Date: 20200714
  Receipt Date: 20200714
  Transmission Date: 20201103
  Serious: Yes (Hospitalization)
  Sender: FDA-Public Use
  Company Number: ES-CADILA HEALTHCARE LIMITED-ES-ZYDUS-051071

PATIENT

DRUGS (6)
  1. AZITHROMYCIN ANHYDROUS. [Interacting]
     Active Substance: AZITHROMYCIN ANHYDROUS
     Indication: PNEUMONIA
  2. DOLQUINE [Interacting]
     Active Substance: HYDROXYCHLOROQUINE SULFATE
     Indication: PNEUMONIA
  3. DEXAMETASONA [DEXAMETHASONE] [Concomitant]
     Active Substance: DEXAMETHASONE
     Indication: PRODUCT USED FOR UNKNOWN INDICATION
     Dosage: 4 MILLIGRAM, QD
     Route: 042
     Dates: start: 20200326, end: 20200327
  4. AZITHROMYCIN ANHYDROUS. [Suspect]
     Active Substance: AZITHROMYCIN ANHYDROUS
     Indication: CORONAVIRUS INFECTION
     Dosage: 500 MILLIGRAM, QD
     Route: 048
     Dates: start: 20200325, end: 20200329
  5. PROPOFOL. [Interacting]
     Active Substance: PROPOFOL
     Indication: SEDATION
     Dosage: 6.6 MILLIGRAM/KILOGRAM (EVERY HOUR)
     Route: 042
     Dates: start: 20200328, end: 20200328
  6. DOLQUINE [Interacting]
     Active Substance: HYDROXYCHLOROQUINE SULFATE
     Indication: CORONAVIRUS INFECTION
     Dosage: 400 MILLIGRAM, QD
     Route: 048
     Dates: start: 20200325, end: 20200329

REACTIONS (1)
  - Propofol infusion syndrome [Recovering/Resolving]

NARRATIVE: CASE EVENT DATE: 20200328
